FAERS Safety Report 24104237 (Version 1)
Quarter: 2024Q3

REPORT INFORMATION
  Report Type: Spontaneous
  Country: CN (occurrence: CN)
  Receive Date: 20240717
  Receipt Date: 20240717
  Transmission Date: 20241016
  Serious: Yes (Other)
  Sender: JIANGSU HENGRUI MEDICINE
  Company Number: CN-Jiangsu Hengrui Medicine Co., Ltd.-2159207

PATIENT
  Age: 74 Year
  Sex: Male
  Weight: 49 kg

DRUGS (2)
  1. DOCETAXEL [Suspect]
     Active Substance: DOCETAXEL\DOCETAXEL ANHYDROUS
     Indication: Lung neoplasm malignant
     Route: 041
     Dates: start: 20240706, end: 20240706
  2. TISLELIZUMAB [Suspect]
     Active Substance: TISLELIZUMAB
     Route: 041
     Dates: start: 20240706, end: 20240706

REACTIONS (3)
  - Gamma-glutamyltransferase increased [Recovering/Resolving]
  - Alpha hydroxybutyrate dehydrogenase increased [Recovering/Resolving]
  - Blood lactate dehydrogenase increased [Recovering/Resolving]

NARRATIVE: CASE EVENT DATE: 20240708
